FAERS Safety Report 5591141-4 (Version None)
Quarter: 2008Q1

REPORT INFORMATION
  Report Type: 
  Country: None (occurrence: None)
  Receive Date: 20080110
  Receipt Date: 20080110
  Transmission Date: 20080703
  Serious: Yes (Life-Threatening, Hospitalization, Other)
  Sender: FDA-Public Use
  Company Number: None

PATIENT
  Sex: Female
  Weight: 47.6277 kg

DRUGS (1)
  1. PROVIGIL [Suspect]
     Indication: NARCOLEPSY
     Dosage: .5 TO 1 TABLET EVERY MORNING PO
     Route: 048
     Dates: start: 20061106, end: 20061125

REACTIONS (12)
  - ANGIOPATHY [None]
  - ASTHENOPIA [None]
  - COGNITIVE DISORDER [None]
  - EYE PAIN [None]
  - FATIGUE [None]
  - RAYNAUD'S PHENOMENON [None]
  - STEVENS-JOHNSON SYNDROME [None]
  - THROMBOSIS [None]
  - TOXIC EPIDERMAL NECROLYSIS [None]
  - UNEMPLOYMENT [None]
  - VISUAL ACUITY REDUCED [None]
  - VISUAL DISTURBANCE [None]
